FAERS Safety Report 12105873 (Version 5)
Quarter: 2017Q1

REPORT INFORMATION
  Report Type: Report from Study
  Country: None (occurrence: BR)
  Receive Date: 20160223
  Receipt Date: 20170324
  Transmission Date: 20170428
  Serious: Yes (Other)
  Sender: FDA-Public Use
  Company Number: BR-ABBVIE-16K-020-1560822-00

PATIENT
  Age: 62 Year
  Sex: Female
  Weight: 62 kg

DRUGS (10)
  1. HUMIRA [Suspect]
     Active Substance: ADALIMUMAB
     Route: 058
     Dates: end: 20160415
  2. PURAN [Concomitant]
     Active Substance: LEVOTHYROXINE SODIUM
     Indication: THYROID DISORDER
  3. SYNTHROID [Concomitant]
     Active Substance: LEVOTHYROXINE SODIUM
     Indication: THYROID DISORDER
     Dosage: THE DOSE CAN VARY (88-100 MG) AS PRESCRIBED.
     Route: 048
     Dates: start: 2014, end: 2015
  4. METHOTREXATE. [Concomitant]
     Active Substance: METHOTREXATE
     Indication: PSORIASIS
     Dates: start: 20120831
  5. TECNOMET [Concomitant]
     Active Substance: METHOTREXATE
     Indication: PSORIATIC ARTHROPATHY
     Route: 048
  6. FOLIC ACID. [Concomitant]
     Active Substance: FOLIC ACID
     Indication: VITAMIN SUPPLEMENTATION
     Route: 048
     Dates: start: 20120831
  7. HUMIRA [Suspect]
     Active Substance: ADALIMUMAB
     Indication: PSORIATIC ARTHROPATHY
     Route: 058
     Dates: start: 20120831
  8. HUMIRA [Suspect]
     Active Substance: ADALIMUMAB
     Route: 058
  9. ENDOFOLIN [Concomitant]
     Active Substance: FOLIC ACID
     Indication: ANAEMIA PROPHYLAXIS
     Route: 048
  10. PURAN [Concomitant]
     Active Substance: LEVOTHYROXINE SODIUM
     Indication: HYPOTHYROIDISM
     Route: 048
     Dates: start: 2014

REACTIONS (34)
  - Periarthritis [Not Recovered/Not Resolved]
  - Bursitis [Recovering/Resolving]
  - Musculoskeletal pain [Recovering/Resolving]
  - Ligament rupture [Not Recovered/Not Resolved]
  - Musculoskeletal stiffness [Not Recovered/Not Resolved]
  - Insomnia [Not Recovered/Not Resolved]
  - Musculoskeletal pain [Recovering/Resolving]
  - Pain in extremity [Unknown]
  - Gait disturbance [Recovered/Resolved]
  - Musculoskeletal stiffness [Unknown]
  - Ovarian cyst [Not Recovered/Not Resolved]
  - Tendon rupture [Not Recovered/Not Resolved]
  - Joint dislocation [Unknown]
  - Bone marrow oedema [Unknown]
  - Tendon rupture [Recovering/Resolving]
  - Pre-existing condition improved [Recovering/Resolving]
  - Joint range of motion decreased [Not Recovered/Not Resolved]
  - Joint effusion [Unknown]
  - Fall [Recovered/Resolved]
  - Discomfort [Recovering/Resolving]
  - Ligament rupture [Not Recovered/Not Resolved]
  - Arthralgia [Recovered/Resolved]
  - Ovarian cyst [Not Recovered/Not Resolved]
  - Therapeutic response unexpected [Recovering/Resolving]
  - Bursitis [Recovered/Resolved]
  - Meniscus injury [Recovered/Resolved]
  - Activities of daily living impaired [Not Recovered/Not Resolved]
  - Arthropathy [Unknown]
  - Bursitis [Recovering/Resolving]
  - Osteoarthritis [Unknown]
  - Spinal osteoarthritis [Not Recovered/Not Resolved]
  - Vitamin D decreased [Recovering/Resolving]
  - Neck pain [Not Recovered/Not Resolved]
  - Headache [Not Recovered/Not Resolved]

NARRATIVE: CASE EVENT DATE: 2012
